FAERS Safety Report 6668469-X (Version None)
Quarter: 2010Q2

REPORT INFORMATION
  Report Type: 
  Country: None (occurrence: None)
  Receive Date: 20100406
  Receipt Date: 20100330
  Transmission Date: 20101027
  Serious: Yes (Hospitalization)
  Sender: FDA-Public Use
  Company Number: PHHO2008DE11506

PATIENT
  Sex: Female

DRUGS (4)
  1. CGS 20267 T30748+TAB [Suspect]
     Indication: BREAST CANCER
     Dosage: 2.5 MG, QD
     Route: 048
     Dates: start: 20070310
  2. ZOLEDRONIC ACID [Suspect]
  3. CALCIUM [Concomitant]
  4. VITAMIN D [Concomitant]

REACTIONS (11)
  - DRUG INEFFECTIVE [None]
  - INTERNAL FIXATION OF FRACTURE [None]
  - LUNG DISORDER [None]
  - MALIGNANT NEOPLASM PROGRESSION [None]
  - METASTASES TO LIVER [None]
  - METASTASES TO SMALL INTESTINE [None]
  - METASTASES TO SPINE [None]
  - OSTEOLYSIS [None]
  - PATHOLOGICAL FRACTURE [None]
  - SPINAL FUSION SURGERY [None]
  - THORACIC VERTEBRAL FRACTURE [None]
